FAERS Safety Report 13302646 (Version 1)
Quarter: 2017Q1

REPORT INFORMATION
  Report Type: Spontaneous
  Country: US (occurrence: US)
  Receive Date: 20170307
  Receipt Date: 20170307
  Transmission Date: 20170428
  Serious: No
  Sender: FDA-Public Use
  Company Number: US-BAYER-2017-043951

PATIENT
  Sex: Female

DRUGS (2)
  1. IODINE. [Concomitant]
     Active Substance: IODINE
     Indication: INTRA-UTERINE CONTRACEPTIVE DEVICE INSERTION
  2. MIRENA [Suspect]
     Active Substance: LEVONORGESTREL
     Dosage: 20 MCG/24HR, CONT
     Route: 015
     Dates: start: 201701

REACTIONS (3)
  - Vaginal haemorrhage [Not Recovered/Not Resolved]
  - Procedural pain [Recovered/Resolved]
  - Vaginal discharge [Recovered/Resolved]

NARRATIVE: CASE EVENT DATE: 201701
